FAERS Safety Report 8540180-X (Version None)
Quarter: 2012Q3

REPORT INFORMATION
  Report Type: 
  Country: None (occurrence: None)
  Receive Date: 20120726
  Receipt Date: 20120719
  Transmission Date: 20120928
  Serious: Yes (Death, Hospitalization, Other)
  Sender: FDA-Public Use
  Company Number: JP-PFIZER INC-2012094831

PATIENT
  Age: 81 Year
  Sex: Male
  Weight: 50 kg

DRUGS (11)
  1. CARVEDILOL [Concomitant]
     Dosage: UNK
  2. ALDACTONE [Concomitant]
     Dosage: UNK
  3. LASIX [Concomitant]
     Dosage: UNK
  4. ALLOPURINOL [Concomitant]
     Dosage: UNK
  5. AMIODARONE HYDROCHLORIDE [Suspect]
     Indication: VENTRICULAR FIBRILLATION
     Dosage: 100 MG, DAILY
     Route: 048
     Dates: start: 20041001, end: 20111220
  6. ADALAT CC [Concomitant]
     Dosage: UNK
  7. DIGOXIN [Concomitant]
     Dosage: UNK
  8. ACARDI [Concomitant]
     Dosage: UNK
     Route: 065
  9. ASPIRIN [Concomitant]
     Dosage: UNK
  10. ISOSORBIDE MONONITRATE [Concomitant]
     Dosage: UNK
  11. WARFARIN [Concomitant]
     Dosage: UNK

REACTIONS (3)
  - CARDIAC FAILURE [None]
  - PNEUMONIA BACTERIAL [None]
  - INTERSTITIAL LUNG DISEASE [None]
